FAERS Safety Report 9240434 (Version 1)
Quarter: 2013Q2

REPORT INFORMATION
  Report Type: Spontaneous
  Country: US (occurrence: None)
  Receive Date: 20130417
  Receipt Date: 20130417
  Transmission Date: 20140414
  Serious: Yes (Hospitalization)
  Sender: FDA-Public Use
  Company Number: AUR-APL-2013-03119

PATIENT
  Age: 65 Year
  Sex: Male

DRUGS (8)
  1. NAPROXEN (NAPROXEN) [Suspect]
     Indication: PRODUCT USED FOR UNKNOWN INDICATION
     Dosage: 2 DOESE OF NAPROXEN, UNKNOWN, STOPPED
  2. ASPIRIN (ACETYLSALICYLIC ACID) [Suspect]
     Indication: PRODUCT USED FOR UNKNOWN INDICATION
  3. COENZYME Q10(UBIDECARENONE) [Concomitant]
  4. ROSUVASTATIN (ROSUVASTATIN) [Concomitant]
  5. VALSARTAN (VALSARTAN) [Concomitant]
  6. EZETIMIBE (EZETIMIBE) [Concomitant]
  7. FISH OIL (FISH OIL) [Concomitant]
  8. VITAMINS [Concomitant]

REACTIONS (1)
  - Gastrointestinal haemorrhage [None]
